FAERS Safety Report 5675811-5 (Version None)
Quarter: 2008Q1

REPORT INFORMATION
  Report Type: 
  Country: None (occurrence: None)
  Receive Date: 20080321
  Receipt Date: 20080318
  Transmission Date: 20080703
  Serious: Yes (Hospitalization, Other)
  Sender: FDA-Public Use
  Company Number: AU-AVENTIS-200812477GDDC

PATIENT
  Age: 72 Year
  Sex: Female

DRUGS (1)
  1. LANTUS [Suspect]
     Route: 058
     Dates: start: 20061102

REACTIONS (4)
  - HYPERHIDROSIS [None]
  - HYPOGLYCAEMIA [None]
  - INFLUENZA [None]
  - NERVOUSNESS [None]
